FAERS Safety Report 4971607-8 (Version None)
Quarter: 2006Q2

REPORT INFORMATION
  Report Type: 
  Country: None (occurrence: None)
  Receive Date: 20060406
  Receipt Date: 20060317
  Transmission Date: 20061013
  Serious: Yes (Hospitalization)
  Sender: FDA-Public Use
  Company Number: PH200603005261

PATIENT
  Age: 81 Year

DRUGS (1)
  1. ZYPREXA [Suspect]
     Indication: SCHIZOPHRENIA
     Dosage: 15 MG, ORAL
     Route: 048

REACTIONS (5)
  - ASCITES [None]
  - CYST [None]
  - DIARRHOEA [None]
  - EXERCISE LACK OF [None]
  - ILEUS PARALYTIC [None]
